FAERS Safety Report 19737016 (Version 1)
Quarter: 2021Q3

REPORT INFORMATION
  Report Type: Spontaneous
  Country: US (occurrence: US)
  Receive Date: 20210823
  Receipt Date: 20210823
  Transmission Date: 20211014
  Serious: Yes (Hospitalization, Other)
  Sender: FDA-Public Use
  Company Number: US-AMNEAL PHARMACEUTICALS-2021-AMRX-03412

PATIENT
  Age: 15 Year
  Sex: Female

DRUGS (4)
  1. NORETHINDRONE ACETATE. [Suspect]
     Active Substance: NORETHINDRONE ACETATE
     Indication: HEAVY MENSTRUAL BLEEDING
     Dosage: UNK, 3 /DAY
     Route: 048
  2. NORETHINDRONE ACETATE. [Suspect]
     Active Substance: NORETHINDRONE ACETATE
     Indication: INTERMENSTRUAL BLEEDING
  3. ETONOGESTREL [Suspect]
     Active Substance: ETONOGESTREL
     Indication: INTERMENSTRUAL BLEEDING
     Dosage: UNK
     Route: 065
  4. LEVONORGESTREL. [Concomitant]
     Active Substance: LEVONORGESTREL
     Indication: INTERMENSTRUAL BLEEDING
     Dosage: UNK
     Route: 065

REACTIONS (3)
  - Shock haemorrhagic [Recovered/Resolved]
  - Hepatic adenoma [Recovered/Resolved]
  - Withdrawal bleed [Recovered/Resolved]
